FAERS Safety Report 10959190 (Version 1)
Quarter: 2015Q1

REPORT INFORMATION
  Report Type: Spontaneous
  Country: US (occurrence: US)
  Receive Date: 20150327
  Receipt Date: 20150327
  Transmission Date: 20150721
  Serious: Yes (Death)
  Sender: FDA-Public Use
  Company Number: US-CIPLA LTD.-2015US02349

PATIENT

DRUGS (5)
  1. CARVEDILOL. [Suspect]
     Active Substance: CARVEDILOL
  2. METFORMIN [Suspect]
     Active Substance: METFORMIN HYDROCHLORIDE
  3. PRASUGREL [Suspect]
     Active Substance: PRASUGREL
  4. PESTICIDE [Suspect]
     Active Substance: UNSPECIFIED INGREDIENT
  5. ETHANOL [Suspect]
     Active Substance: ALCOHOL

REACTIONS (1)
  - Death [Fatal]
